FAERS Safety Report 5159123-4 (Version None)
Quarter: 2006Q4

REPORT INFORMATION
  Report Type: 
  Country: None (occurrence: None)
  Receive Date: 20061116
  Receipt Date: 20061107
  Transmission Date: 20070319
  Serious: Yes (Other)
  Sender: FDA-Public Use
  Company Number: 13561188

PATIENT
  Sex: Male
  Weight: 68.03 kg

DRUGS (11)
  1. EMSAM [Suspect]
     Indication: DEPRESSION
     Dosage: 9 MILLIGRAM, 1/24 HOUR TD
  2. LYRICA [Concomitant]
  3. DIAZEPAM [Concomitant]
  4. NORTRIPTYLINE HCL [Concomitant]
  5. FOLIC ACID [Concomitant]
  6. ASPIRIN [Concomitant]
  7. TYLENOL [Concomitant]
  8. LORATADINE [Concomitant]
  9. CYTOMEL [Concomitant]
  10. VITRON-C [Concomitant]
  11. PROPRANOLOL [Concomitant]

REACTIONS (1)
  - HYPERTENSIVE CRISIS [None]
